FAERS Safety Report 16526846 (Version 1)
Quarter: 2019Q3

REPORT INFORMATION
  Report Type: Spontaneous
  Country: NL (occurrence: NL)
  Receive Date: 20190703
  Receipt Date: 20190703
  Transmission Date: 20191004
  Serious: Yes (Hospitalization)
  Sender: FDA-Public Use
  Company Number: NL-TEVA-2019-NL-1072546

PATIENT
  Age: 55 Year
  Sex: Female
  Weight: 80 kg

DRUGS (1)
  1. CETIRIZINE [Suspect]
     Active Substance: CETIRIZINE HYDROCHLORIDE
     Indication: PAPULE
     Dosage: 10 MG
     Dates: start: 20190527, end: 20190529

REACTIONS (4)
  - Diarrhoea [Unknown]
  - Pain [Unknown]
  - Urine abnormality [Unknown]
  - Incontinence [Unknown]

NARRATIVE: CASE EVENT DATE: 20190530
